FAERS Safety Report 10017206 (Version 2)
Quarter: 2014Q2

REPORT INFORMATION
  Report Type: Spontaneous
  Country: US (occurrence: US)
  Receive Date: 20140318
  Receipt Date: 20140423
  Transmission Date: 20141212
  Serious: No
  Sender: FDA-Public Use
  Company Number: US-009507513-1403USA007975

PATIENT
  Age: 79 Year
  Sex: Female

DRUGS (2)
  1. FOSAMAX [Suspect]
     Dosage: 1 TABLET ONCE WEEKLY
     Dates: start: 2008
  2. BUTALBITAL [Concomitant]
     Dosage: UNK

REACTIONS (2)
  - Headache [Unknown]
  - Inappropriate schedule of drug administration [Unknown]
